FAERS Safety Report 8154569-4 (Version None)
Quarter: 2012Q1

REPORT INFORMATION
  Report Type: 
  Country: None (occurrence: None)
  Receive Date: 20120221
  Receipt Date: 20120217
  Transmission Date: 20120608
  Serious: Yes (Life-Threatening, Hospitalization)
  Sender: FDA-Public Use
  Company Number: DE-ROCHE-1040030

PATIENT
  Age: 61 Year
  Sex: Female

DRUGS (6)
  1. LEVOTHYROXINE SODIUM [Concomitant]
  2. ETORICOXIB [Concomitant]
     Dates: start: 20120120
  3. KALIUMIODID [Concomitant]
  4. DIPYRONE TAB [Suspect]
     Indication: ARTHRALGIA
     Dosage: MIN 20 MAX DOSE 60
     Dates: start: 20120120, end: 20120212
  5. VEMURAFENIB [Suspect]
     Indication: MALIGNANT MELANOMA
     Route: 048
     Dates: start: 20111223, end: 20120213
  6. CITALOPRAM HYDROBROMIDE [Concomitant]

REACTIONS (2)
  - PNEUMONIA [None]
  - LEUKOPENIA [None]
